FAERS Safety Report 18663876 (Version 1)
Quarter: 2020Q4

REPORT INFORMATION
  Report Type: Spontaneous
  Country: FR (occurrence: FR)
  Receive Date: 20201224
  Receipt Date: 20201224
  Transmission Date: 20210114
  Serious: Yes (Death, Other)
  Sender: FDA-Public Use
  Company Number: FR-LUPIN PHARMACEUTICALS INC.-2020-10798

PATIENT
  Age: 18 Year
  Sex: Female

DRUGS (2)
  1. ARTESUNATE [Suspect]
     Active Substance: ARTESUNATE
     Indication: EBOLA DISEASE
     Dosage: 2.4 MILLIGRAM/KILOGRAM
     Route: 042
     Dates: start: 201910, end: 201910
  2. CEFTRIAXONE. [Suspect]
     Active Substance: CEFTRIAXONE
     Indication: EBOLA DISEASE
     Dosage: 2 GRAM
     Route: 042
     Dates: start: 201910, end: 201910

REACTIONS (6)
  - Maternal exposure during pregnancy [Unknown]
  - Haemoptysis [Fatal]
  - Shock haemorrhagic [Fatal]
  - Premature delivery [Unknown]
  - Postpartum haemorrhage [Fatal]
  - Disseminated intravascular coagulation [Fatal]

NARRATIVE: CASE EVENT DATE: 201910
